FAERS Safety Report 25957221 (Version 1)
Quarter: 2025Q4

REPORT INFORMATION
  Report Type: Spontaneous
  Country: CN (occurrence: CN)
  Receive Date: 20251024
  Receipt Date: 20251024
  Transmission Date: 20260118
  Serious: Yes (Hospitalization)
  Sender: PFIZER
  Company Number: CN-PFIZER INC-PV202500124763

PATIENT
  Age: 73 Year
  Sex: Female
  Weight: 56 kg

DRUGS (3)
  1. ZYVOX [Suspect]
     Active Substance: LINEZOLID
     Indication: Hypertension
     Dosage: 0.6 G, 2X/DAY
     Route: 041
     Dates: start: 20251011, end: 20251015
  2. ZYVOX [Suspect]
     Active Substance: LINEZOLID
     Indication: Femur fracture
  3. ZYVOX [Suspect]
     Active Substance: LINEZOLID
     Indication: Anti-infective therapy

REACTIONS (2)
  - Nausea [Unknown]
  - Decreased appetite [Unknown]

NARRATIVE: CASE EVENT DATE: 20251001
